FAERS Safety Report 6145024-1 (Version None)
Quarter: 2009Q2

REPORT INFORMATION
  Report Type: 
  Country: None (occurrence: None)
  Receive Date: 20090406
  Receipt Date: 20090325
  Transmission Date: 20091009
  Serious: Yes (Hospitalization)
  Sender: FDA-Public Use
  Company Number: FR-BRISTOL-MYERS SQUIBB COMPANY-14054282

PATIENT
  Age: 35 Year
  Sex: Female

DRUGS (5)
  1. ABATACEPT [Suspect]
     Indication: CROHN'S DISEASE
     Route: 042
     Dates: start: 20080107
  2. IMUREL [Concomitant]
     Dates: start: 20051114
  3. RIFINAH [Concomitant]
     Dates: start: 20071224
  4. PARACETAMOL [Concomitant]
     Dates: start: 20040101
  5. RIMIFON [Concomitant]
     Dates: start: 20071224

REACTIONS (2)
  - ANXIETY [None]
  - TRANSIENT ISCHAEMIC ATTACK [None]
